FAERS Safety Report 24624932 (Version 2)
Quarter: 2024Q4

REPORT INFORMATION
  Report Type: Spontaneous
  Country: JP (occurrence: JP)
  Receive Date: 20241115
  Receipt Date: 20241125
  Transmission Date: 20250115
  Serious: Yes (Other)
  Sender: FERRING
  Company Number: JP-ferring-EVA202401647FERRINGPH

PATIENT

DRUGS (3)
  1. DESMOPRESSIN ACETATE [Suspect]
     Active Substance: DESMOPRESSIN ACETATE
     Indication: Diabetes insipidus
     Dosage: 60 UG, 1 TIME DAILY
     Route: 048
  2. DESMOPRESSIN ACETATE [Suspect]
     Active Substance: DESMOPRESSIN ACETATE
     Dosage: 60 UG, 1 TIME DAILY
     Route: 065
  3. DESMOPRESSIN ACETATE [Suspect]
     Active Substance: DESMOPRESSIN ACETATE
     Dosage: 60 UG, 1 TIME DAILY
     Route: 048
     Dates: start: 20241111

REACTIONS (2)
  - Gastric fistula [Recovering/Resolving]
  - Physical deconditioning [Recovering/Resolving]
